FAERS Safety Report 4916753-X (Version None)
Quarter: 2006Q1

REPORT INFORMATION
  Report Type: 
  Country: None (occurrence: None)
  Receive Date: 20060220
  Receipt Date: 20060127
  Transmission Date: 20060701
  Serious: Yes (Hospitalization)
  Sender: FDA-Public Use
  Company Number: PHHO2006US01709

PATIENT
  Age: 72 Year
  Sex: Male
  Weight: 70.1 kg

DRUGS (5)
  1. CARBIDOPA,ENTACAPONE,LEVODOPA [Suspect]
     Indication: PARKINSON'S DISEASE
     Dosage: 100 MG, TID
     Route: 048
     Dates: start: 20060117, end: 20060123
  2. PROVENTIL [Concomitant]
  3. MIRAPEX [Concomitant]
  4. LORAZEPAM [Concomitant]
  5. VERAPAMIL [Concomitant]

REACTIONS (8)
  - ACUTE MYOCARDIAL INFARCTION [None]
  - ASTHMA [None]
  - BLOOD CREATINE PHOSPHOKINASE INCREASED [None]
  - BLOOD CREATINE PHOSPHOKINASE MB INCREASED [None]
  - CARDIAC FAILURE CONGESTIVE [None]
  - DYSPNOEA [None]
  - PULMONARY HYPERTENSION [None]
  - TROPONIN T INCREASED [None]
